FAERS Safety Report 7978172-1 (Version None)
Quarter: 2011Q4

REPORT INFORMATION
  Report Type: 
  Country: None (occurrence: None)
  Receive Date: 20111214
  Receipt Date: 20111206
  Transmission Date: 20120403
  Serious: Yes (Life-Threatening, Hospitalization, Other)
  Sender: FDA-Public Use
  Company Number: US-ELI_LILLY_AND_COMPANY-US201108003703

PATIENT
  Sex: Female

DRUGS (3)
  1. FORTEO [Suspect]
     Dosage: 20 UG, UNKNOWN
     Route: 065
  2. FORTEO [Suspect]
     Dosage: 20 UG, UNKNOWN
  3. FORTEO [Suspect]
     Dosage: 20 UG, UNKNOWN

REACTIONS (6)
  - PATHOLOGICAL FRACTURE [None]
  - HEADACHE [None]
  - PNEUMONIA [None]
  - PAIN [None]
  - COMA [None]
  - PNEUMOTHORAX [None]
